FAERS Safety Report 7905282-7 (Version None)
Quarter: 2011Q4

REPORT INFORMATION
  Report Type: 
  Country: None (occurrence: None)
  Receive Date: 20111109
  Receipt Date: 20111103
  Transmission Date: 20120403
  Serious: Yes (Death, Other)
  Sender: FDA-Public Use
  Company Number: KR-BAXTER-2011BH035138

PATIENT

DRUGS (12)
  1. DOXORUBICIN HCL [Suspect]
     Indication: PERIPHERAL T-CELL LYMPHOMA UNSPECIFIED
     Route: 042
  2. DIPHENHYDRAMINE HCL [Concomitant]
     Indication: PROPHYLAXIS
     Route: 042
  3. ALEMTUZUMAB [Suspect]
     Route: 042
  4. PREDNISONE [Suspect]
     Indication: PERIPHERAL T-CELL LYMPHOMA UNSPECIFIED
     Route: 048
  5. CYCLOPHOSPHAMIDE [Suspect]
     Indication: PERIPHERAL T-CELL LYMPHOMA UNSPECIFIED
     Route: 042
  6. ALEMTUZUMAB [Suspect]
     Indication: PERIPHERAL T-CELL LYMPHOMA UNSPECIFIED
     Route: 042
  7. ACYCLOVIR [Concomitant]
     Indication: PROPHYLAXIS
     Route: 065
  8. SULFAMETHOXAZOLE AND TRIMETHOPRIM [Concomitant]
     Indication: PROPHYLAXIS
     Route: 065
  9. VINCRISTINE SULFATE [Suspect]
     Indication: PERIPHERAL T-CELL LYMPHOMA UNSPECIFIED
     Route: 042
  10. ALEMTUZUMAB [Suspect]
     Route: 042
  11. ACETAMINOPHEN [Concomitant]
     Indication: PROPHYLAXIS
     Route: 048
  12. HYDROCORTISONE [Concomitant]
     Indication: PROPHYLAXIS
     Route: 065

REACTIONS (5)
  - MULTI-ORGAN FAILURE [None]
  - SEPTIC SHOCK [None]
  - PANCYTOPENIA [None]
  - LUNG ABSCESS [None]
  - LUNG INFECTION PSEUDOMONAL [None]
